FAERS Safety Report 9556882 (Version 1)
Quarter: 2013Q3

REPORT INFORMATION
  Report Type: Spontaneous
  Country: US (occurrence: None)
  Receive Date: 20130906
  Receipt Date: 20130906
  Transmission Date: 20140515
  Serious: Yes (Other)
  Sender: FDA-Public Use
  Company Number: 163-POMAL-13052630

PATIENT
  Age: 37 Year
  Sex: Male

DRUGS (4)
  1. POMALYST [Suspect]
     Indication: PLASMA CELL MYELOMA
     Dosage: 2 MG, 21 IN 28 D, PO
     Route: 048
     Dates: start: 20130417, end: 20130515
  2. DEXAMETHASONE (DEXAMETHASONE) [Concomitant]
  3. CLARITIN (LORATADINE) [Concomitant]
  4. NAPROSYN (NAPROXEN) [Concomitant]

REACTIONS (2)
  - Plasma cell myeloma [None]
  - Drug ineffective [None]
